FAERS Safety Report 8505611-X (Version None)
Quarter: 2012Q3

REPORT INFORMATION
  Report Type: 
  Country: None (occurrence: None)
  Receive Date: 20120712
  Receipt Date: 20120709
  Transmission Date: 20120928
  Serious: Yes (Other)
  Sender: FDA-Public Use
  Company Number: US-PFIZER INC-2012144725

PATIENT
  Age: 69 Year
  Sex: Male
  Weight: 56.689 kg

DRUGS (5)
  1. VALSARTAN [Concomitant]
     Dosage: 80 MG, 1X/DAY
     Route: 048
  2. SILDENAFIL [Concomitant]
     Dosage: 50 MG, 1X/DAY AS NEEDED
     Route: 048
  3. METFORMIN [Concomitant]
     Dosage: 850 MG, 2X/DAY
     Route: 048
  4. ACETYLSALICYLIC ACID [Concomitant]
     Dosage: 81 MG, 1X/DAY
     Route: 048
  5. VARENICLINE TARTRATE [Suspect]
     Indication: SMOKING CESSATION THERAPY
     Dosage: 0.5 MG, 1X/DAY
     Route: 048

REACTIONS (1)
  - DRUG-INDUCED LIVER INJURY [None]
